FAERS Safety Report 16630860 (Version 2)
Quarter: 2020Q1

REPORT INFORMATION
  Report Type: Spontaneous
  Country: CA (occurrence: CA)
  Receive Date: 20190725
  Receipt Date: 20200106
  Transmission Date: 20200409
  Serious: No
  Sender: FDA-Public Use
  Company Number: CA-PFIZER INC-2019310614

PATIENT
  Age: 54 Year
  Sex: Male

DRUGS (1)
  1. FRAGMIN [Suspect]
     Active Substance: DALTEPARIN SODIUM
     Dosage: 18000 IU, 2X/DAY
     Route: 065

REACTIONS (1)
  - Prescribed overdose [Unknown]
